FAERS Safety Report 4452623-1 (Version None)
Quarter: 2004Q3

REPORT INFORMATION
  Report Type: 
  Country: None (occurrence: None)
  Receive Date: 20040813
  Receipt Date: 20040524
  Transmission Date: 20050211
  Serious: No
  Sender: FDA-Public Use
  Company Number: S04-USA-03436-01

PATIENT
  Sex: Female

DRUGS (10)
  1. NAMENDA [Suspect]
     Indication: DEMENTIA ALZHEIMER'S TYPE
     Dosage: 5 MG QD PO
     Route: 048
     Dates: start: 20040520, end: 20040524
  2. ARICEPT [Concomitant]
  3. LEVOXYL [Concomitant]
  4. FUROSEMIDE [Concomitant]
  5. HYDROCHLOROTHIAZIDE [Concomitant]
  6. DIGOXIN [Concomitant]
  7. POTASSIUM [Concomitant]
  8. TOPROL-XL [Concomitant]
  9. WARFARIN SODIUM [Concomitant]
  10. LIPITOR [Concomitant]

REACTIONS (3)
  - ANGER [None]
  - ANXIETY [None]
  - FEAR [None]
